FAERS Safety Report 4958581-5 (Version None)
Quarter: 2006Q1

REPORT INFORMATION
  Report Type: 
  Country: None (occurrence: None)
  Receive Date: 20060127
  Receipt Date: 20050804
  Transmission Date: 20060701
  Serious: Yes (Hospitalization)
  Sender: FDA-Public Use
  Company Number: 05-08-1384

PATIENT
  Age: 60 Year
  Sex: Female

DRUGS (4)
  1. CLOZAPINE [Suspect]
     Indication: PSYCHOTIC DISORDER
     Dosage: 200MG, QD, ORAL
     Route: 048
     Dates: start: 20050301, end: 20050801
  2. VALPROATE SODIUM [Concomitant]
  3. MOXIFLOXACIN HYDROCHLORIDE [Concomitant]
  4. INSULIN [Concomitant]

REACTIONS (1)
  - GRANULOCYTOPENIA [None]
